FAERS Safety Report 9759143 (Version 1)
Quarter: 2013Q4

REPORT INFORMATION
  Report Type: Report from Study
  Country: CN (occurrence: CN)
  Receive Date: 20131216
  Receipt Date: 20131216
  Transmission Date: 20140711
  Serious: Yes (Death)
  Sender: FDA-Public Use
  Company Number: CN-ASTELLAS-2013JP013854

PATIENT
  Sex: Male

DRUGS (1)
  1. TACROLIMUS CAPSULES [Suspect]
     Indication: LIVER TRANSPLANT
     Dosage: 3 MG, BID
     Route: 048
     Dates: start: 20130115

REACTIONS (1)
  - Death [Fatal]
